FAERS Safety Report 9258407 (Version 1)
Quarter: 2013Q2

REPORT INFORMATION
  Report Type: Spontaneous
  Country: AU (occurrence: AU)
  Receive Date: 20130426
  Receipt Date: 20130426
  Transmission Date: 20140414
  Serious: Yes (Other)
  Sender: FDA-Public Use
  Company Number: PHHY2013AU040255

PATIENT
  Sex: 0

DRUGS (2)
  1. FLUCONAZOLE [Suspect]
  2. AMPHOTERICIN B LIPID COMPLEX [Interacting]

REACTIONS (3)
  - Renal impairment [Unknown]
  - Acute hepatic failure [Recovered/Resolved]
  - Drug interaction [Unknown]
